FAERS Safety Report 26115274 (Version 1)
Quarter: 2025Q4

REPORT INFORMATION
  Report Type: Spontaneous
  Country: US (occurrence: US)
  Receive Date: 20251203
  Receipt Date: 20251203
  Transmission Date: 20260118
  Serious: No
  Sender: TEVA
  Company Number: US-TEVA-VS-3394517

PATIENT
  Age: 75 Year
  Sex: Female

DRUGS (3)
  1. ALBUTEROL SULFATE [Suspect]
     Active Substance: ALBUTEROL SULFATE
     Indication: Asthma
     Dosage: 90MCG/DOSE, METERED DOSE AEROSOL, TAKES IT ONCE A DAY, SOMETIMES TWICE AS NEEDED
     Route: 055
  2. ALBUTEROL SULFATE [Suspect]
     Active Substance: ALBUTEROL SULFATE
     Indication: Dyspnoea
  3. ALBUTEROL SULFATE [Suspect]
     Active Substance: ALBUTEROL SULFATE
     Indication: Wheezing

REACTIONS (6)
  - Dyspnoea [Unknown]
  - Fatigue [Unknown]
  - Product cleaning inadequate [Unknown]
  - Pruritus [Unknown]
  - Nervousness [Unknown]
  - Incorrect dose administered by device [Unknown]
